FAERS Safety Report 5014631-1 (Version None)
Quarter: 2006Q2

REPORT INFORMATION
  Report Type: 
  Country: None (occurrence: None)
  Receive Date: 20060531
  Receipt Date: 20060522
  Transmission Date: 20061013
  Serious: Yes (Hospitalization)
  Sender: FDA-Public Use
  Company Number: 2006UW10104

PATIENT
  Age: 74 Year
  Sex: Male

DRUGS (6)
  1. TOPROL-XL [Suspect]
     Route: 048
  2. AVELOX [Interacting]
     Indication: COUGH
     Route: 048
     Dates: start: 20050725, end: 20050725
  3. PROPRANOLOL [Concomitant]
     Route: 048
  4. IRBESARTAN [Concomitant]
     Route: 048
  5. HYDROCHLOROTHIAZIDE [Concomitant]
  6. ALPRAZOLAM [Concomitant]

REACTIONS (4)
  - BLOOD PRESSURE IMMEASURABLE [None]
  - DRUG INTERACTION [None]
  - HYPERSENSITIVITY [None]
  - SYNCOPE [None]
